FAERS Safety Report 9324642 (Version 1)
Quarter: 2013Q2

REPORT INFORMATION
  Report Type: Report from Study
  Country: FR (occurrence: FR)
  Receive Date: 20130603
  Receipt Date: 20130603
  Transmission Date: 20140414
  Serious: Yes (Hospitalization)
  Sender: FDA-Public Use
  Company Number: FR-GLAXOSMITHKLINE-A0891019A

PATIENT
  Age: 64 Year
  Sex: Male
  Weight: 63 kg

DRUGS (3)
  1. LAPATINIB [Suspect]
     Indication: SQUAMOUS CELL CARCINOMA OF HEAD AND NECK
     Dosage: 1500MG PER DAY
     Route: 048
     Dates: start: 20100917
  2. CISPLATIN [Suspect]
     Indication: SQUAMOUS CELL CARCINOMA OF HEAD AND NECK
     Dosage: 100MGM2 CYCLIC
     Route: 042
     Dates: start: 20100921
  3. RADIOTHERAPY [Concomitant]
     Indication: SQUAMOUS CELL CARCINOMA OF HEAD AND NECK
     Dosage: 8GY VARIABLE DOSE
     Route: 061
     Dates: start: 20100921, end: 20100924

REACTIONS (2)
  - Dysphagia [Recovered/Resolved]
  - Neutropenia [Recovered/Resolved]
